FAERS Safety Report 7267623-6 (Version None)
Quarter: 2011Q1

REPORT INFORMATION
  Report Type: 
  Country: None (occurrence: None)
  Receive Date: 20110121
  Receipt Date: 20110104
  Transmission Date: 20110831
  Serious: No
  Sender: FDA-Public Use
  Company Number: PHHY2010CH73580

PATIENT
  Age: 31 Year
  Sex: Female

DRUGS (2)
  1. TIZANIDINE HCL [Suspect]
     Dosage: 4 MG, DAILY;
     Dates: start: 20090601, end: 20090601
  2. S-OIV FOCETRIA (NVD) (A/CALIFORNIA/07/2009_S-OIV, INFLUENZA VACCINE,MF [Suspect]
     Indication: IMMUNISATION
     Dosage: INJECTION NOS
     Dates: start: 20091127, end: 20091127

REACTIONS (3)
  - PREMATURE LABOUR [None]
  - DRUG EXPOSURE DURING PREGNANCY [None]
  - CAESAREAN SECTION [None]
